FAERS Safety Report 16702821 (Version 1)
Quarter: 2019Q3

REPORT INFORMATION
  Report Type: Report from Study
  Country: PL (occurrence: PL)
  Receive Date: 20190814
  Receipt Date: 20190814
  Transmission Date: 20191004
  Serious: Yes (Hospitalization)
  Sender: FDA-Public Use
  Company Number: PL-CELLTRION, INC.-2073147

PATIENT
  Age: 66 Year
  Sex: Male
  Weight: 84.2 kg

DRUGS (19)
  1. PANTOPRAZOLE SODIUM. [Concomitant]
     Active Substance: PANTOPRAZOLE SODIUM
  2. VIVOMIXX [Concomitant]
  3. INFLECTRA [Suspect]
     Active Substance: INFLIXIMAB-DYYB
     Indication: RHEUMATOID ARTHRITIS
     Route: 042
     Dates: start: 20171208, end: 20171208
  4. PROPAFENONE. [Concomitant]
     Active Substance: PROPAFENONE
  5. ALLERGY (LORATADINE) [Concomitant]
     Active Substance: LORATADINE
  6. HEPARIN SODIUM. [Concomitant]
     Active Substance: HEPARIN SODIUM
  7. LACTO DR [Concomitant]
  8. METHYLPREDNISOLONE. [Concomitant]
     Active Substance: METHYLPREDNISOLONE
  9. TELMISARTAN. [Concomitant]
     Active Substance: TELMISARTAN
  10. INDAPAMIDE. [Concomitant]
     Active Substance: INDAPAMIDE
  11. PARACETAMOL [Concomitant]
     Active Substance: ACETAMINOPHEN
  12. RIVAROXABAN [Concomitant]
     Active Substance: RIVAROXABAN
  13. LIDOCAINE HYDROCHLORIDE. [Concomitant]
     Active Substance: LIDOCAINE HYDROCHLORIDE
  14. DICLOFENAC SODIUM. [Concomitant]
     Active Substance: DICLOFENAC SODIUM
  15. NEBIVOLOL. [Concomitant]
     Active Substance: NEBIVOLOL
  16. LECALPIN [Concomitant]
  17. AMIODARONE HYDROCHLORIDE. [Concomitant]
     Active Substance: AMIODARONE HYDROCHLORIDE
  18. FENTANYL. [Concomitant]
     Active Substance: FENTANYL
  19. MIDAZOLAM HYDROCHLORIDE. [Concomitant]
     Active Substance: MIDAZOLAM HYDROCHLORIDE

REACTIONS (1)
  - Pertussis [Recovered/Resolved]

NARRATIVE: CASE EVENT DATE: 20180130
